FAERS Safety Report 23041597 (Version 1)
Quarter: 2023Q4

REPORT INFORMATION
  Report Type: Spontaneous
  Country: SV (occurrence: SV)
  Receive Date: 20231007
  Receipt Date: 20231007
  Transmission Date: 20240110
  Serious: Yes (Other)
  Sender: FDA-Public Use
  Company Number: SV-002147023-NVSC2023SV149608

PATIENT
  Sex: Female

DRUGS (1)
  1. GLIVEC [Suspect]
     Active Substance: IMATINIB MESYLATE
     Indication: Chronic myeloid leukaemia
     Dosage: 300 MG (3X100MG)
     Route: 065

REACTIONS (5)
  - Cerebrovascular accident [Unknown]
  - Aphasia [Unknown]
  - Tongue paralysis [Unknown]
  - Hypoaesthesia [Unknown]
  - Asthenia [Unknown]
